FAERS Safety Report 7061624-9 (Version None)
Quarter: 2010Q4

REPORT INFORMATION
  Report Type: 
  Country: None (occurrence: None)
  Receive Date: 20101026
  Receipt Date: 20101006
  Transmission Date: 20110411
  Serious: No
  Sender: FDA-Public Use
  Company Number: US-ABBOTT-10P-163-0677186-00

PATIENT
  Sex: Female
  Weight: 122.58 kg

DRUGS (3)
  1. LUPRON DEPOT [Suspect]
     Indication: ENDOMETRIOSIS
     Dates: start: 20100901, end: 20100901
  2. AMLODIPINE [Concomitant]
     Indication: HYPERTENSION
  3. NORETHINDRONE ACETATE [Concomitant]
     Indication: ENDOMETRIOSIS

REACTIONS (3)
  - NIGHT SWEATS [None]
  - PRURITUS [None]
  - VISION BLURRED [None]
